FAERS Safety Report 15295721 (Version 3)
Quarter: 2018Q3

REPORT INFORMATION
  Report Type: Spontaneous
  Country: US (occurrence: US)
  Receive Date: 20180820
  Receipt Date: 20180829
  Transmission Date: 20181010
  Serious: Yes (Other)
  Sender: FDA-Public Use
  Company Number: US-SA-2018SA226429

PATIENT
  Age: 56 Year
  Sex: Female

DRUGS (1)
  1. ZANTAC [Suspect]
     Active Substance: RANITIDINE HYDROCHLORIDE
     Indication: DYSPEPSIA
     Dosage: UNK, QD
     Dates: end: 20180814

REACTIONS (6)
  - Foreign body in respiratory tract [Unknown]
  - Chest pain [Unknown]
  - Drug ineffective [Unknown]
  - Pulmonary congestion [Unknown]
  - Off label use [Unknown]
  - Incorrect dose administered [Unknown]
